FAERS Safety Report 4500904-5 (Version None)
Quarter: 2004Q4

REPORT INFORMATION
  Report Type: 
  Country: None (occurrence: None)
  Receive Date: 20041109
  Receipt Date: 20041026
  Transmission Date: 20050328
  Serious: Yes (Hospitalization, Other)
  Sender: FDA-Public Use
  Company Number: 2004-00383

PATIENT
  Age: 60 Year
  Sex: Female
  Weight: 83 kg

DRUGS (8)
  1. VELCADE [Suspect]
     Indication: MULTIPLE MYELOMA
     Dosage: 2.50 MG;  2.00 MG
     Dates: start: 20040427, end: 20040430
  2. VELCADE [Suspect]
     Indication: MULTIPLE MYELOMA
     Dosage: 2.50 MG;  2.00 MG
     Dates: start: 20040517, end: 20040706
  3. DIGOXIN [Concomitant]
  4. WARFARIN SODIUM [Concomitant]
  5. ATENOLOL [Concomitant]
  6. NORTRIPTYLINE HCL [Concomitant]
  7. NEURONTIN [Concomitant]
  8. CARBAMAZEPINE [Concomitant]

REACTIONS (17)
  - ALANINE AMINOTRANSFERASE INCREASED [None]
  - ALOPECIA [None]
  - ASPARTATE AMINOTRANSFERASE INCREASED [None]
  - ATRIAL FIBRILLATION [None]
  - BLOOD CREATININE INCREASED [None]
  - BLOOD PRESSURE INCREASED [None]
  - BLOOD SODIUM DECREASED [None]
  - DIZZINESS [None]
  - DYSPNOEA [None]
  - GENERALISED OEDEMA [None]
  - INTERNATIONAL NORMALISED RATIO INCREASED [None]
  - MITRAL VALVE INCOMPETENCE [None]
  - ORTHOSTATIC HYPOTENSION [None]
  - PALPITATIONS [None]
  - PLATELET COUNT DECREASED [None]
  - SYNCOPE [None]
  - WHEEZING [None]
